FAERS Safety Report 9384303 (Version 1)
Quarter: 2013Q3

REPORT INFORMATION
  Report Type: Report from Study
  Country: US (occurrence: US)
  Receive Date: 20130705
  Receipt Date: 20130705
  Transmission Date: 20140515
  Serious: No
  Sender: FDA-Public Use
  Company Number: PHEH2013US013348

PATIENT
  Sex: Female

DRUGS (11)
  1. TASIGNA [Suspect]
     Indication: CHRONIC MYELOID LEUKAEMIA
     Dosage: 200 MG, BID
     Route: 048
     Dates: start: 20130606, end: 20130627
  2. CENTRUM [Concomitant]
  3. MULTI-VIT [Concomitant]
  4. LISINOPRIL [Concomitant]
     Dosage: 10 MG
  5. DOXYCYCLINE [Concomitant]
     Dosage: 100 MG
  6. BENADRYL [Concomitant]
  7. DILTIAZEM [Concomitant]
  8. CALCIUM +VIT D [Concomitant]
  9. PROAIR (FLUTICASONE PROPIONATE) [Concomitant]
     Dosage: UNK
  10. EPIPEN [Concomitant]
     Dosage: 0.3 MG, UNK
  11. IRON [Concomitant]
     Dosage: 27 MG, UNK

REACTIONS (3)
  - Abdominal pain [Unknown]
  - Abdominal discomfort [Unknown]
  - Flatulence [Unknown]
